FAERS Safety Report 9010903 (Version 2)
Quarter: 2013Q4

REPORT INFORMATION
  Report Type: Spontaneous
  Country: GB (occurrence: GB)
  Receive Date: 20130109
  Receipt Date: 20131004
  Transmission Date: 20140711
  Serious: Yes (Hospitalization)
  Sender: FDA-Public Use
  Company Number: GB-ASTRAZENECA-2013SE00004

PATIENT
  Age: 73 Year
  Sex: Female

DRUGS (6)
  1. OMEPRAZOLE [Suspect]
  2. TAZOCIN [Suspect]
     Indication: PNEUMONIA
     Dates: start: 20110211, end: 20110215
  3. TAZOCIN [Suspect]
     Indication: PERITONITIS BACTERIAL
     Dates: start: 20110211, end: 20110215
  4. TAZOCIN [Suspect]
     Indication: PNEUMONIA
     Dosage: 4.5 MG THREE TIMES A DAY, GENERIC
     Dates: end: 20110504
  5. TAZOCIN [Suspect]
     Indication: PERITONITIS BACTERIAL
     Dosage: 4.5 MG THREE TIMES A DAY, GENERIC
     Dates: end: 20110504
  6. CIPROFLOXACIN [Suspect]
     Indication: PNEUMONIA
     Dates: start: 20110215, end: 20110303

REACTIONS (3)
  - Clostridium difficile infection [Recovered/Resolved]
  - Intestinal dilatation [Unknown]
  - Diarrhoea [Recovered/Resolved]
